FAERS Safety Report 6199987-9 (Version None)
Quarter: 2009Q2

REPORT INFORMATION
  Report Type: 
  Country: None (occurrence: None)
  Receive Date: 20090518
  Receipt Date: 20090206
  Transmission Date: 20091009
  Serious: No
  Sender: FDA-Public Use
  Company Number: WAES 0812USA03242

PATIENT
  Age: 57 Year
  Sex: Female
  Weight: 81.6475 kg

DRUGS (3)
  1. JANUVIA [Suspect]
     Indication: TYPE 2 DIABETES MELLITUS
     Dosage: 100 MG/DAILY/PO
     Route: 048
     Dates: start: 20070101
  2. EXFORGE [Concomitant]
  3. THERAPY UNSPECIFIED [Concomitant]

REACTIONS (1)
  - PAROSMIA [None]
